FAERS Safety Report 13585231 (Version 2)
Quarter: 2018Q2

REPORT INFORMATION
  Report Type: Spontaneous
  Country: US (occurrence: US)
  Receive Date: 20170526
  Receipt Date: 20180620
  Transmission Date: 20180711
  Serious: Yes (Hospitalization, Other)
  Sender: FDA-Public Use
  Company Number: US-ASTRAZENECA-2017SE53956

PATIENT
  Age: 18352 Day
  Sex: Male
  Weight: 95.3 kg

DRUGS (16)
  1. CELEBREX/MELOXICAM [Concomitant]
     Indication: ARTHRITIS
     Dates: start: 20020307, end: 20020309
  2. ASPIRIN. [Concomitant]
     Active Substance: ASPIRIN
     Dates: start: 2009
  3. CALCIUM CARBONATE. [Concomitant]
     Active Substance: CALCIUM CARBONATE
     Dates: start: 2007
  4. NEXIUM [Suspect]
     Active Substance: ESOMEPRAZOLE MAGNESIUM
     Indication: GASTROOESOPHAGEAL REFLUX DISEASE
     Dosage: 40.0MG UNKNOWN
     Route: 048
     Dates: start: 20020418, end: 201306
  5. NEXIUM [Suspect]
     Active Substance: ESOMEPRAZOLE MAGNESIUM
     Indication: PEPTIC ULCER
     Dosage: 40.0MG UNKNOWN
     Route: 048
     Dates: start: 20020418, end: 201306
  6. TUMS [Concomitant]
     Active Substance: CALCIUM CARBONATE
     Dates: start: 2007
  7. TRIMOX [Concomitant]
     Active Substance: AMOXICILLIN
     Indication: ANTIBIOTIC LEVEL
     Dates: start: 20020903, end: 20030711
  8. ACCUPRIL/QUINOPRIL/LISINOPRIL [Concomitant]
     Indication: HYPERTENSION
     Dates: start: 19991022, end: 20120327
  9. LIPITOR/TRICOR/LOVASTATIN [Concomitant]
     Indication: BLOOD CHOLESTEROL
     Dates: start: 20000321, end: 20111110
  10. MULTIVITAMIN [Concomitant]
     Active Substance: VITAMINS
     Dates: start: 2009
  11. BIAXIN [Concomitant]
     Active Substance: CLARITHROMYCIN
     Indication: ANTIBIOTIC LEVEL
     Dates: start: 20020416, end: 20020905
  12. ROLAIDS [Concomitant]
     Active Substance: CALCIUM CARBONATE\MAGNESIUM HYDROXIDE
     Dates: start: 2007
  13. NEXIUM [Suspect]
     Active Substance: ESOMEPRAZOLE MAGNESIUM
     Indication: GASTRIC DISORDER
     Dosage: 40.0MG UNKNOWN
     Route: 048
     Dates: start: 20020418, end: 201306
  14. AMLODIPINE [Concomitant]
     Active Substance: AMLODIPINE BESYLATE
     Indication: ANGINA PECTORIS
     Dates: start: 20070911, end: 20120803
  15. METRONIDAZOLE. [Concomitant]
     Active Substance: METRONIDAZOLE
     Indication: ANTIBIOTIC LEVEL
     Dates: start: 20120703, end: 20121003
  16. ZOLOFT/LEXAPRO [Concomitant]
     Indication: ANTIDEPRESSANT DRUG LEVEL
     Dates: start: 20020529

REACTIONS (4)
  - Chronic kidney disease [Unknown]
  - End stage renal disease [Unknown]
  - Tubulointerstitial nephritis [Unknown]
  - Acute kidney injury [Unknown]

NARRATIVE: CASE EVENT DATE: 20120423
